FAERS Safety Report 9143913 (Version 2)
Quarter: 2013Q1

REPORT INFORMATION
  Report Type: Spontaneous
  Country: IL (occurrence: IL)
  Receive Date: 20130306
  Receipt Date: 20130307
  Transmission Date: 20140127
  Serious: Yes (Hospitalization)
  Sender: FDA-Public Use
  Company Number: IL-ROCHE-1116443

PATIENT
  Age: 62 Year
  Sex: Female

DRUGS (1)
  1. ACTEMRA [Suspect]
     Indication: RHEUMATOID ARTHRITIS
     Route: 065
     Dates: end: 201208

REACTIONS (4)
  - Hepatic enzyme increased [Unknown]
  - Shunt infection [Recovered/Resolved]
  - Liver abscess [Recovered/Resolved]
  - Pyrexia [Unknown]
